FAERS Safety Report 13500951 (Version 4)
Quarter: 2019Q2

REPORT INFORMATION
  Report Type: Spontaneous
  Country: US (occurrence: US)
  Receive Date: 20170501
  Receipt Date: 20190509
  Transmission Date: 20190711
  Serious: No
  Sender: FDA-Public Use
  Company Number: US-ROCHE-1839989

PATIENT
  Sex: Female

DRUGS (14)
  1. NASACORT [Concomitant]
     Active Substance: TRIAMCINOLONE ACETONIDE
  2. NEURONTIN [Concomitant]
     Active Substance: GABAPENTIN
  3. CALTRATE [CALCIUM CARBONATE;COLECALCIFEROL] [Concomitant]
  4. PLAQUENIL [Concomitant]
     Active Substance: HYDROXYCHLOROQUINE SULFATE
  5. TRAMADOL. [Concomitant]
     Active Substance: TRAMADOL
  6. LOSARTAN. [Concomitant]
     Active Substance: LOSARTAN
  7. ESBRIET [Suspect]
     Active Substance: PIRFENIDONE
     Indication: RHEUMATOID ARTHRITIS
  8. CYCLOBENZAPRINE. [Concomitant]
     Active Substance: CYCLOBENZAPRINE
  9. ATORVASTATIN [Concomitant]
     Active Substance: ATORVASTATIN
  10. ESBRIET [Suspect]
     Active Substance: PIRFENIDONE
     Indication: IDIOPATHIC PULMONARY FIBROSIS
     Route: 048
     Dates: start: 20160507
  11. ASPIRIN [ACETYLSALICYLIC ACID] [Concomitant]
     Active Substance: ASPIRIN
  12. SULFAMETHOXAZOLE [Concomitant]
     Active Substance: SULFAMETHOXAZOLE
  13. PREDNISONE. [Concomitant]
     Active Substance: PREDNISONE
  14. PANTOPRAZOLE [Concomitant]
     Active Substance: PANTOPRAZOLE

REACTIONS (5)
  - Rhinorrhoea [Unknown]
  - Speech disorder [Unknown]
  - Epistaxis [Unknown]
  - Dyspnoea [Unknown]
  - Asthenia [Unknown]
